FAERS Safety Report 8400249 (Version 2)
Quarter: 2013Q1

REPORT INFORMATION
  Report Type: Spontaneous
  Country: US (occurrence: US)
  Receive Date: 20120210
  Receipt Date: 20130219
  Transmission Date: 20140127
  Serious: No
  Sender: FDA-Public Use
  Company Number: US-BRISTOL-MYERS SQUIBB COMPANY-16290181

PATIENT
  Age: 45 Year
  Sex: Female
  Weight: 82 kg

DRUGS (10)
  1. ABATACEPT SUBQ INJECTION 125MG/ML [Suspect]
     Indication: RHEUMATOID ARTHRITIS
     Dosage: NO OF INJ:6. 0,4 8 WEEKS?ONCE A MONTH, THEN TWICE A MONTH AND ONCE A WEEK
     Route: 058
     Dates: start: 20111211
  2. ABATACEPT SUBQ INJECTION 125MG/ML [Suspect]
     Indication: SJOGREN^S SYNDROME
     Dosage: NO OF INJ:6. 0,4 8 WEEKS?ONCE A MONTH, THEN TWICE A MONTH AND ONCE A WEEK
     Route: 058
     Dates: start: 20111211
  3. OMEPRAZOLE [Concomitant]
  4. PLAQUENIL [Concomitant]
  5. LEXAPRO [Concomitant]
  6. CLONIDINE [Concomitant]
  7. VICOPROFEN [Concomitant]
  8. SPIRIVA [Concomitant]
  9. IBUPROFEN [Concomitant]
  10. VITAMIN B12 [Concomitant]

REACTIONS (6)
  - Nausea [Not Recovered/Not Resolved]
  - Injection site reaction [Unknown]
  - Fatigue [Unknown]
  - Rheumatoid arthritis [Unknown]
  - Influenza like illness [Unknown]
  - Photosensitivity reaction [Unknown]
